FAERS Safety Report 9745839 (Version 2)
Quarter: 2013Q4

REPORT INFORMATION
  Report Type: Spontaneous
  Country: US (occurrence: US)
  Receive Date: 20131211
  Receipt Date: 20131217
  Transmission Date: 20140711
  Serious: No
  Sender: FDA-Public Use
  Company Number: US-009507513-1312USA004705

PATIENT
  Sex: Female
  Weight: 86.17 kg

DRUGS (1)
  1. IMPLANON [Suspect]
     Indication: CONTRACEPTION
     Dosage: UNK
     Route: 059
     Dates: start: 20120417

REACTIONS (5)
  - Sensation of heaviness [Not Recovered/Not Resolved]
  - Angina pectoris [Not Recovered/Not Resolved]
  - Pulmonary oedema [Not Recovered/Not Resolved]
  - Headache [Not Recovered/Not Resolved]
  - Mood altered [Not Recovered/Not Resolved]
